FAERS Safety Report 5660603-3 (Version None)
Quarter: 2008Q1

REPORT INFORMATION
  Report Type: 
  Country: None (occurrence: None)
  Receive Date: 20080306
  Receipt Date: 20080229
  Transmission Date: 20080703
  Serious: Yes (Hospitalization)
  Sender: FDA-Public Use
  Company Number: 2008-01623

PATIENT
  Age: 56 Year
  Sex: Male

DRUGS (2)
  1. CHLOROQUINE PHOSPHATE [Suspect]
     Indication: RHEUMATOID ARTHRITIS
     Dosage: 250 MG, DAILY X 6 YEARS, ORAL
     Route: 048
     Dates: start: 20020101, end: 20070101
  2. PREDNISONE TAB [Concomitant]

REACTIONS (3)
  - ATRIOVENTRICULAR BLOCK [None]
  - BUNDLE BRANCH BLOCK [None]
  - RESTRICTIVE CARDIOMYOPATHY [None]
